FAERS Safety Report 18914960 (Version 1)
Quarter: 2021Q1

REPORT INFORMATION
  Report Type: Spontaneous
  Country: NO (occurrence: NO)
  Receive Date: 20210219
  Receipt Date: 20210219
  Transmission Date: 20210420
  Serious: Yes (Disabling)
  Sender: FDA-Public Use
  Company Number: NO-009507513-2102NOR006475

PATIENT
  Age: 52 Year
  Sex: Female

DRUGS (12)
  1. TRILAFON DEKANOAT [Concomitant]
     Active Substance: PERPHENAZINE DECANOATE
     Indication: MENTAL DISORDER
     Dosage: TRILAFON DEKANOAT INJECTION LIQUID 108.2 MG/ML,GETS THE WHOLE AMPOULE EVERY 3 WEEKS, N05AB03 ? PERFE
     Dates: start: 2006
  2. Q10 QUATRAL [Concomitant]
     Dosage: UNK
  3. AERIUS (DESLORATADINE) [Suspect]
     Active Substance: DESLORATADINE
     Indication: URTICARIA
  4. FEXOFENADINE [Suspect]
     Active Substance: FEXOFENADINE HYDROCHLORIDE
     Indication: SEASONAL ALLERGY
     Dosage: DOSE NOT REPORTED, Q12H, TWICE DAILY WHEN NEEDED, R06AX26 ? FEXOFENADINE ? ONGOING TREATMENT
     Route: 048
     Dates: start: 2019
  5. ZYRTEC [Suspect]
     Active Substance: CETIRIZINE HYDROCHLORIDE
     Indication: SEASONAL ALLERGY
  6. GARLIC. [Concomitant]
     Active Substance: GARLIC
     Dosage: UNK
  7. FEXOFENADINE [Suspect]
     Active Substance: FEXOFENADINE HYDROCHLORIDE
     Indication: HYPERSENSITIVITY
  8. OMEGA?3 ACIDS [Concomitant]
     Active Substance: OMEGA-3 FATTY ACIDS
     Dosage: UNK
  9. AERIUS (DESLORATADINE) [Suspect]
     Active Substance: DESLORATADINE
     Indication: HYPERSENSITIVITY
     Dosage: DOSE NOT REPORTED, Q12H, TWICE DAILY WHEN NEEDED, R06AX27 ? DESLORATADIN ? ONGOING TREATMENT
     Route: 048
     Dates: start: 2012
  10. OMEGA (HAWTHORN (+) LILY OF THE VALLEY (+) PROXYPHYLLINE) [Concomitant]
     Dosage: UNK
  11. ZYRTEC [Suspect]
     Active Substance: CETIRIZINE HYDROCHLORIDE
     Indication: HYPERSENSITIVITY
     Dosage: DOSE NOT REPORTED, Q12H, TWICE DAILY WHEN NEEDED, R06AE07 ? CETIRIZIN ? ONGOING TREATMENT
     Route: 048
     Dates: start: 2019
  12. OMEGA (HAWTHORN (+) LILY OF THE VALLEY (+) PROXYPHYLLINE) [Concomitant]
     Dosage: UNK

REACTIONS (3)
  - Dizziness [Not Recovered/Not Resolved]
  - Diarrhoea [Not Recovered/Not Resolved]
  - Fatigue [Not Recovered/Not Resolved]

NARRATIVE: CASE EVENT DATE: 2019
